FAERS Safety Report 6185056-0 (Version None)
Quarter: 2009Q2

REPORT INFORMATION
  Report Type: 
  Country: None (occurrence: None)
  Receive Date: 20090511
  Receipt Date: 20090429
  Transmission Date: 20091009
  Serious: Yes (Hospitalization, Other)
  Sender: FDA-Public Use
  Company Number: FR-JNJFOC-20090300789

PATIENT
  Age: 56 Year
  Sex: Male

DRUGS (3)
  1. REMICADE [Suspect]
     Dosage: DOSE = 54 MG. RECEIVED 26TH INFUSION
     Route: 042
  2. REMICADE [Suspect]
     Indication: ANKYLOSING SPONDYLITIS
     Dosage: DOSE = 54 MG.
     Route: 042
  3. METHOTREXATE [Concomitant]
     Route: 048

REACTIONS (12)
  - CEREBELLAR ATAXIA [None]
  - HEADACHE [None]
  - HYPERHIDROSIS [None]
  - IIIRD NERVE PARESIS [None]
  - INFUSION RELATED REACTION [None]
  - IVTH NERVE PARESIS [None]
  - MALAISE [None]
  - MULTIPLE SCLEROSIS [None]
  - NEURALGIA [None]
  - PAIN [None]
  - VERTIGO [None]
  - VIRAL INFECTION [None]
